FAERS Safety Report 8100679-7 (Version None)
Quarter: 2012Q1

REPORT INFORMATION
  Report Type: 
  Country: None (occurrence: None)
  Receive Date: 20120129
  Receipt Date: 20111205
  Transmission Date: 20120608
  Serious: No
  Sender: FDA-Public Use
  Company Number: US-ABBOTT-11P-163-0700894-00

PATIENT
  Sex: Female
  Weight: 74.002 kg

DRUGS (14)
  1. ZANAFLEX [Concomitant]
     Indication: FIBROMYALGIA
  2. KLONOPIN [Concomitant]
     Indication: ANXIETY
  3. AMBIEN [Concomitant]
     Indication: INSOMNIA
     Dosage: PRN
  4. HUMIRA [Suspect]
     Indication: PSORIATIC ARTHROPATHY
  5. ZOLOFT [Concomitant]
     Indication: DEPRESSION
  6. ZANAFLEX [Concomitant]
     Indication: MUSCLE SPASMS
  7. VENTOLIN [Concomitant]
     Indication: CHRONIC OBSTRUCTIVE PULMONARY DISEASE
     Route: 055
  8. HUMIRA [Suspect]
     Indication: PSORIASIS
     Route: 058
     Dates: start: 20101001
  9. UNKNOWN INHALER [Concomitant]
     Indication: BRONCHITIS CHRONIC
  10. WELLBUTRIN [Concomitant]
     Indication: DEPRESSION
     Dates: start: 20101201
  11. NEXIUM [Concomitant]
     Indication: GASTROOESOPHAGEAL REFLUX DISEASE
  12. ABILIFY [Suspect]
     Indication: DEPRESSION
     Dates: end: 20101201
  13. OMEPRAZOLE [Concomitant]
     Indication: PRODUCT USED FOR UNKNOWN INDICATION
  14. APLENZIN [Concomitant]
     Indication: DEPRESSION

REACTIONS (22)
  - SYSTEMIC LUPUS ERYTHEMATOSUS [None]
  - PERIPHERAL COLDNESS [None]
  - VOMITING [None]
  - FATIGUE [None]
  - ATTENTION DEFICIT/HYPERACTIVITY DISORDER [None]
  - BURNING SENSATION [None]
  - COUGH [None]
  - HEADACHE [None]
  - FEELING OF BODY TEMPERATURE CHANGE [None]
  - DEPRESSION [None]
  - MUSCULOSKELETAL PAIN [None]
  - CONTUSION [None]
  - RAYNAUD'S PHENOMENON [None]
  - SKIN DISCOLOURATION [None]
  - NAUSEA [None]
  - CRYING [None]
  - PAIN IN EXTREMITY [None]
  - MOBILITY DECREASED [None]
  - GASTRIC DISORDER [None]
  - ASPIRATION [None]
  - FEELING ABNORMAL [None]
  - BACK PAIN [None]
